FAERS Safety Report 15318929 (Version 1)
Quarter: 2018Q3

REPORT INFORMATION
  Report Type: Spontaneous
  Country: US (occurrence: US)
  Receive Date: 20180820
  Receipt Date: 20180820
  Transmission Date: 20181010
  Serious: Yes (Life-Threatening, Disabling)
  Sender: FDA-Public Use
  Company Number: None

PATIENT
  Age: 43 Year
  Sex: Male
  Weight: 103.5 kg

DRUGS (1)
  1. LIOTHYRONINE [Suspect]
     Active Substance: LIOTHYRONINE
     Indication: THYROID DISORDER
     Dosage: ?          OTHER STRENGTH:MCG;QUANTITY:60 TABLET(S);?
     Route: 048
     Dates: start: 20180131, end: 20180801

REACTIONS (8)
  - Vomiting [None]
  - Gastritis [None]
  - Pharyngeal oedema [None]
  - Pain [None]
  - Insomnia [None]
  - Gastrooesophageal reflux disease [None]
  - Cough [None]
  - Dyspnoea [None]

NARRATIVE: CASE EVENT DATE: 20180701
